FAERS Safety Report 6705812-7 (Version None)
Quarter: 2010Q2

REPORT INFORMATION
  Report Type: 
  Country: None (occurrence: None)
  Receive Date: 20100503
  Receipt Date: 20100422
  Transmission Date: 20101027
  Serious: Yes (Life-Threatening, Hospitalization, Other)
  Sender: FDA-Public Use
  Company Number: US-BAYER-200937502NA

PATIENT
  Age: 28 Year
  Sex: Female
  Weight: 86 kg

DRUGS (4)
  1. YAZ [Suspect]
     Indication: CONTRACEPTION
     Dosage: TOTAL DAILY DOSE: 1 DF
     Route: 048
     Dates: start: 20080625, end: 20090119
  2. HCL [Concomitant]
     Indication: MULTIPLE ALLERGIES
     Dates: start: 20080829, end: 20081124
  3. COUMADIN [Concomitant]
     Dates: start: 20090116, end: 20090701
  4. HEPARIN [Concomitant]
     Dates: start: 20100116, end: 20100119

REACTIONS (8)
  - CHEST DISCOMFORT [None]
  - CHEST PAIN [None]
  - DYSPNOEA [None]
  - FEELING ABNORMAL [None]
  - MITRAL VALVE PROLAPSE [None]
  - PALPITATIONS [None]
  - PULMONARY EMBOLISM [None]
  - PULMONARY INFARCTION [None]
